FAERS Safety Report 5023670-6 (Version None)
Quarter: 2006Q2

REPORT INFORMATION
  Report Type: 
  Country: None (occurrence: None)
  Receive Date: 20060606
  Receipt Date: 20060522
  Transmission Date: 20061013
  Serious: Yes (Other)
  Sender: FDA-Public Use
  Company Number: HQWYE653930JUL04

PATIENT
  Age: 61 Year
  Sex: Female
  Weight: 68.1 kg

DRUGS (6)
  1. PREMPRO [Suspect]
  2. CLIMARA [Suspect]
  3. MEDROXYPROGESTERONE ACETATE [Suspect]
  4. OGEN [Suspect]
  5. PREMARIN [Suspect]
  6. PROVERA [Suspect]

REACTIONS (5)
  - BREAST CANCER FEMALE [None]
  - LYMPH NODE CANCER METASTATIC [None]
  - METASTASES TO LYMPH NODES [None]
  - OESTROGEN RECEPTOR ASSAY POSITIVE [None]
  - PROGESTERONE RECEPTOR ASSAY POSITIVE [None]
